FAERS Safety Report 6190649-0 (Version None)
Quarter: 2009Q2

REPORT INFORMATION
  Report Type: 
  Country: None (occurrence: None)
  Receive Date: 20090514
  Receipt Date: 20090511
  Transmission Date: 20091009
  Serious: Yes (Hospitalization)
  Sender: FDA-Public Use
  Company Number: IT-ABBOTT-09P-083-0572360-00

PATIENT
  Sex: Male

DRUGS (1)
  1. HUMIRA [Suspect]
     Indication: PUSTULAR PSORIASIS
     Dosage: CYCLIC
     Route: 058
     Dates: start: 20081110, end: 20090310

REACTIONS (2)
  - DIZZINESS [None]
  - LEUKOENCEPHALOPATHY [None]
